FAERS Safety Report 24582683 (Version 2)
Quarter: 2024Q4

REPORT INFORMATION
  Report Type: Spontaneous
  Country: JP (occurrence: JP)
  Receive Date: 20241106
  Receipt Date: 20241119
  Transmission Date: 20250115
  Serious: No
  Sender: NOVO NORDISK
  Company Number: JP-NOVOPROD-1311823

PATIENT
  Sex: Female

DRUGS (4)
  1. LEVEMIR [Suspect]
     Active Substance: INSULIN DETEMIR
     Indication: Product used for unknown indication
     Dosage: 13 IU, QD
     Route: 064
     Dates: start: 20211029, end: 20211217
  2. NOVORAPID [Suspect]
     Active Substance: INSULIN ASPART
     Indication: Product used for unknown indication
     Dosage: 14 IU, TID
     Route: 064
     Dates: start: 20211119
  3. NOVOLIN N [Suspect]
     Active Substance: INSULIN HUMAN
     Indication: Product used for unknown indication
     Dosage: UNK
     Route: 064
     Dates: start: 20211217
  4. HUMALOG [Suspect]
     Active Substance: INSULIN LISPRO
     Indication: Product used for unknown indication
     Dosage: UNK
     Route: 064
     Dates: start: 20211105, end: 20211119

REACTIONS (2)
  - Foetal growth abnormality [Recovered/Resolved]
  - Foetal exposure during pregnancy [Recovered/Resolved]
